FAERS Safety Report 6302886-2 (Version None)
Quarter: 2009Q3

REPORT INFORMATION
  Report Type: 
  Country: None (occurrence: None)
  Receive Date: 20090810
  Receipt Date: 20090803
  Transmission Date: 20100115
  Serious: Yes (Hospitalization, Other)
  Sender: FDA-Public Use
  Company Number: US-AVENTIS-200916873US

PATIENT
  Sex: Male

DRUGS (2)
  1. LANTUS [Suspect]
     Route: 058
     Dates: start: 20070101
  2. OPTICLIK (INSULIN INJECTION PEN) [Suspect]
     Dates: start: 20070101

REACTIONS (5)
  - BLOOD POTASSIUM INCREASED [None]
  - BRONCHOPNEUMONIA [None]
  - HEART RATE DECREASED [None]
  - INJECTION SITE PAIN [None]
  - RESPIRATORY DISORDER [None]
